FAERS Safety Report 20120273 (Version 1)
Quarter: 2021Q4

REPORT INFORMATION
  Report Type: Spontaneous
  Country: NL (occurrence: NL)
  Receive Date: 20211126
  Receipt Date: 20211126
  Transmission Date: 20220303
  Serious: Yes (Congenital Anomaly)
  Sender: FDA-Public Use
  Company Number: None

PATIENT
  Sex: Male
  Weight: 3.2 kg

DRUGS (1)
  1. OMEPRAZOLE [Suspect]
     Active Substance: OMEPRAZOLE
     Indication: Dyspepsia
     Dosage: MAAGSAPRESISTENTE CAPSULE, 20 MG (MILLIGRAM),
     Route: 064
     Dates: start: 2019, end: 20190321

REACTIONS (1)
  - Tooth hypoplasia [Unknown]
